FAERS Safety Report 5927724-9 (Version None)
Quarter: 2008Q4

REPORT INFORMATION
  Report Type: 
  Country: None (occurrence: None)
  Receive Date: 20081023
  Receipt Date: 20081009
  Transmission Date: 20090506
  Serious: Yes (Other)
  Sender: FDA-Public Use
  Company Number: US-BAYER-200835797NA

PATIENT
  Age: 33 Year
  Sex: Female
  Weight: 77 kg

DRUGS (2)
  1. MIRENA [Suspect]
     Indication: CONTRACEPTION
     Route: 015
     Dates: start: 20071004
  2. MORPHINE [Concomitant]
     Indication: DRUG USE FOR UNKNOWN INDICATION

REACTIONS (3)
  - BREAST DISCHARGE [None]
  - PROCEDURAL PAIN [None]
  - VAGINAL DISCHARGE [None]
